FAERS Safety Report 5335861-5 (Version None)
Quarter: 2007Q2

REPORT INFORMATION
  Report Type: 
  Country: None (occurrence: None)
  Receive Date: 20070301
  Receipt Date: 20060913
  Transmission Date: 20071010
  Serious: Yes (Other)
  Sender: FDA-Public Use
  Company Number: 229858

PATIENT
  Age: 15 Year
  Sex: Female
  Weight: 40.6 kg

DRUGS (3)
  1. NUTROPIN [Suspect]
     Indication: GROWTH HORMONE DEFICIENCY
     Dosage: 2.2 MG, 6/WEEK, SUBCUTANEOUS
     Route: 058
     Dates: start: 20000505
  2. SINGULAIR [Concomitant]
  3. VOLTAREN [Concomitant]

REACTIONS (1)
  - SCOLIOSIS [None]
